FAERS Safety Report 23739548 (Version 7)
Quarter: 2025Q2

REPORT INFORMATION
  Report Type: Spontaneous
  Country: CA (occurrence: CA)
  Receive Date: 20240413
  Receipt Date: 20250616
  Transmission Date: 20250717
  Serious: Yes (Hospitalization, Other)
  Sender: BOEHRINGER INGELHEIM
  Company Number: CA-BoehringerIngelheim-2024-BI-021541

PATIENT
  Age: 65 Year
  Sex: Female

DRUGS (41)
  1. PRAMIPEXOLE [Suspect]
     Active Substance: PRAMIPEXOLE
     Indication: Depression
  2. PRAMIPEXOLE [Suspect]
     Active Substance: PRAMIPEXOLE
  3. PANTOPRAZOLE [Suspect]
     Active Substance: PANTOPRAZOLE
     Indication: Gastrooesophageal reflux disease
  4. PANTOPRAZOLE [Suspect]
     Active Substance: PANTOPRAZOLE
  5. LEMBOREXANT [Suspect]
     Active Substance: LEMBOREXANT
     Indication: Insomnia
  6. LEMBOREXANT [Suspect]
     Active Substance: LEMBOREXANT
     Indication: Depression
  7. APIXABAN [Suspect]
     Active Substance: APIXABAN
     Indication: Depression
  8. BREXPIPRAZOLE [Suspect]
     Active Substance: BREXPIPRAZOLE
     Indication: Insomnia
  9. BREXPIPRAZOLE [Suspect]
     Active Substance: BREXPIPRAZOLE
     Indication: Depression
  10. LAMOTRIGINE [Suspect]
     Active Substance: LAMOTRIGINE
     Indication: Depression
  11. FLUOXETINE [Suspect]
     Active Substance: FLUOXETINE HYDROCHLORIDE
     Indication: Depression
  12. LURASIDONE HYDROCHLORIDE [Suspect]
     Active Substance: LURASIDONE HYDROCHLORIDE
     Indication: Depression
  13. LURASIDONE HYDROCHLORIDE [Suspect]
     Active Substance: LURASIDONE HYDROCHLORIDE
  14. FLUVOXAMINE [Suspect]
     Active Substance: FLUVOXAMINE
     Indication: Depression
  15. GABAPENTIN [Suspect]
     Active Substance: GABAPENTIN
     Indication: Depression
  16. LORAZEPAM [Suspect]
     Active Substance: LORAZEPAM
     Indication: Depression
  17. MIRTAZAPINE [Suspect]
     Active Substance: MIRTAZAPINE
     Indication: Anticoagulant therapy
  18. MIRTAZAPINE [Suspect]
     Active Substance: MIRTAZAPINE
     Indication: Depression
  19. OLANZAPINE [Suspect]
     Active Substance: OLANZAPINE
     Indication: Depression
  20. PAROXETINE HYDROCHLORIDE [Suspect]
     Active Substance: PAROXETINE HYDROCHLORIDE
     Indication: Depression
  21. QUETIAPINE [Suspect]
     Active Substance: QUETIAPINE
     Indication: Depression
  22. RISPERIDONE [Suspect]
     Active Substance: RISPERIDONE
     Indication: Depression
  23. ZOPICLONE [Suspect]
     Active Substance: ZOPICLONE
     Indication: Depression
  24. VORTIOXETINE [Suspect]
     Active Substance: VORTIOXETINE
     Indication: Depression
  25. BUPROPION [Suspect]
     Active Substance: BUPROPION
     Indication: Depression
  26. BUPROPION [Suspect]
     Active Substance: BUPROPION
  27. BUPROPION [Suspect]
     Active Substance: BUPROPION
  28. BUPROPION [Suspect]
     Active Substance: BUPROPION
  29. CANNABIS SATIVA FLOWERING TOP [Suspect]
     Active Substance: CANNABIS SATIVA FLOWERING TOP
     Indication: Insomnia
  30. CLOMIPRAMINE [Suspect]
     Active Substance: CLOMIPRAMINE
     Indication: Depression
  31. ZOLPIDEM [Suspect]
     Active Substance: ZOLPIDEM TARTRATE
     Indication: Depression
  32. ESCITALOPRAM [Suspect]
     Active Substance: ESCITALOPRAM OXALATE
     Indication: Depression
  33. VENLAFAXINE HYDROCHLORIDE [Suspect]
     Active Substance: VENLAFAXINE HYDROCHLORIDE
     Indication: Depression
  34. DAYVIGO [Suspect]
     Active Substance: LEMBOREXANT
     Indication: Depression
  35. REXULTI [Suspect]
     Active Substance: BREXPIPRAZOLE
     Indication: Depression
  36. VORTIOXETINE HYDROBROMIDE [Suspect]
     Active Substance: VORTIOXETINE HYDROBROMIDE
     Indication: Product used for unknown indication
  37. LEVOMEPROMAZINE [Suspect]
     Active Substance: LEVOMEPROMAZINE
     Indication: Depression
  38. PAROXETINE [Suspect]
     Active Substance: PAROXETINE
     Indication: Depression
  39. LAMOTRIGINE [Suspect]
     Active Substance: LAMOTRIGINE
     Indication: Product used for unknown indication
  40. LEVOMEPROMAZINE [Suspect]
     Active Substance: LEVOMEPROMAZINE
     Indication: Depression
  41. PANTOPRAZOLE SODIUM ANHYDROUS [Suspect]
     Active Substance: PANTOPRAZOLE SODIUM ANHYDROUS
     Indication: Gastrooesophageal reflux disease

REACTIONS (7)
  - Suicidal ideation [Recovered/Resolved]
  - Suicide attempt [Recovered/Resolved]
  - Condition aggravated [Recovered/Resolved]
  - Drug ineffective [Recovered/Resolved]
  - Adverse drug reaction [Recovered/Resolved]
  - Underdose [Recovered/Resolved]
  - Off label use [Recovered/Resolved]
